FAERS Safety Report 8434232-2 (Version None)
Quarter: 2012Q2

REPORT INFORMATION
  Report Type: 
  Country: None (occurrence: None)
  Receive Date: 20120613
  Receipt Date: 20120605
  Transmission Date: 20120825
  Serious: Yes (Hospitalization)
  Sender: FDA-Public Use
  Company Number: TW-ROXANE LABORATORIES, INC.-2012-RO-01366RO

PATIENT
  Age: 57 Year
  Sex: Male

DRUGS (1)
  1. AZATHIOPRINE [Suspect]
     Indication: DERMATITIS ATOPIC
     Dosage: 100 MG

REACTIONS (2)
  - ERYTHEMA NODOSUM [None]
  - PANCREATITIS ACUTE [None]
